FAERS Safety Report 12675613 (Version 1)
Quarter: 2016Q3

REPORT INFORMATION
  Report Type: Spontaneous
  Country: US (occurrence: US)
  Receive Date: 20160823
  Receipt Date: 20160823
  Transmission Date: 20161109
  Serious: No
  Sender: FDA-Public Use
  Company Number: US-BAYER-2016-162468

PATIENT
  Age: 68 Year
  Sex: Female
  Weight: 63.49 kg

DRUGS (3)
  1. CORTISONE [CORTISONE] [Concomitant]
     Dosage: UNK
  2. ALEVE [Suspect]
     Active Substance: NAPROXEN SODIUM
     Indication: MYALGIA
     Dosage: 1 DF, QD
     Route: 048
     Dates: start: 201608
  3. ALEVE PM [Suspect]
     Active Substance: DIPHENHYDRAMINE HYDROCHLORIDE\NAPROXEN SODIUM
     Indication: MYALGIA
     Dosage: 2 DF, QD
     Route: 048

REACTIONS (3)
  - Product use issue [None]
  - Circumstance or information capable of leading to medication error [None]
  - Product use issue [None]

NARRATIVE: CASE EVENT DATE: 201608
